FAERS Safety Report 5255321-X (Version None)
Quarter: 2007Q1

REPORT INFORMATION
  Report Type: 
  Country: None (occurrence: None)
  Receive Date: 20070305
  Receipt Date: 20070228
  Transmission Date: 20070707
  Serious: Yes (Other)
  Sender: FDA-Public Use
  Company Number: ES-GLAXOSMITHKLINE-B0457324A

PATIENT
  Age: 19 Year
  Sex: Male

DRUGS (1)
  1. ZYNTABAC [Suspect]
     Dosage: 150MG TWICE PER DAY
     Route: 048
     Dates: start: 20070103, end: 20070219

REACTIONS (7)
  - DERMATITIS ALLERGIC [None]
  - EYELID OEDEMA [None]
  - LIP OEDEMA [None]
  - PRURITUS [None]
  - RASH [None]
  - RESPIRATORY DISORDER [None]
  - URTICARIA [None]
